FAERS Safety Report 8318941-1 (Version None)
Quarter: 2012Q2

REPORT INFORMATION
  Report Type: 
  Country: None (occurrence: None)
  Receive Date: 20120427
  Receipt Date: 20120420
  Transmission Date: 20120825
  Serious: Yes (Other)
  Sender: FDA-Public Use
  Company Number: DE-JNJFOC-20120307206

PATIENT
  Sex: Male

DRUGS (5)
  1. CARVEDILOL [Concomitant]
  2. DIGITOXIN TAB [Concomitant]
  3. HEPARIN [Concomitant]
  4. XARELTO [Suspect]
     Indication: ATRIAL FIBRILLATION
     Route: 048
     Dates: start: 20120204, end: 20120209
  5. LISINOPRIL [Concomitant]

REACTIONS (2)
  - GAMMA-GLUTAMYLTRANSFERASE INCREASED [None]
  - TRANSAMINASES INCREASED [None]
